FAERS Safety Report 8872800 (Version 1)
Quarter: 2012Q4

REPORT INFORMATION
  Report Type: Report from Study
  Country: BR (occurrence: BR)
  Receive Date: 20121030
  Receipt Date: 20121030
  Transmission Date: 20130627
  Serious: Yes (Other)
  Sender: FDA-Public Use
  Company Number: BR-ROCHE-1150283

PATIENT
  Sex: Female
  Weight: 50 kg

DRUGS (2)
  1. BEVACIZUMAB [Suspect]
     Indication: COLORECTAL CANCER
     Route: 042
     Dates: start: 20111003, end: 20120903
  2. IRINOTECAN [Concomitant]
     Indication: COLORECTAL CANCER
     Route: 065
     Dates: start: 20111003, end: 20120903

REACTIONS (1)
  - Disease progression [Unknown]
